FAERS Safety Report 10460886 (Version 1)
Quarter: 2014Q3

REPORT INFORMATION
  Report Type: Spontaneous
  Country: US (occurrence: None)
  Receive Date: 20140917
  Receipt Date: 20140917
  Transmission Date: 20150326
  Serious: Yes (Death, Life-Threatening)
  Sender: FDA-Public Use
  Company Number: None

PATIENT
  Age: 86 Year
  Sex: Female
  Weight: 83 kg

DRUGS (2)
  1. SOTALOL. [Suspect]
     Active Substance: SOTALOL
     Indication: ATRIAL FIBRILLATION
     Route: 048
  2. FLUCONAZOLE. [Suspect]
     Active Substance: FLUCONAZOLE
     Indication: CANDIDURIA
     Route: 042
     Dates: start: 20140909, end: 20140913

REACTIONS (6)
  - Blood potassium decreased [None]
  - Sudden cardiac death [None]
  - Drug prescribing error [None]
  - Electrocardiogram QT prolonged [None]
  - Creatinine renal clearance decreased [None]
  - Renal impairment [None]

NARRATIVE: CASE EVENT DATE: 20140910
